FAERS Safety Report 7153833-5 (Version None)
Quarter: 2010Q4

REPORT INFORMATION
  Report Type: 
  Country: None (occurrence: None)
  Receive Date: 20101213
  Receipt Date: 20101028
  Transmission Date: 20110411
  Serious: No
  Sender: FDA-Public Use
  Company Number: US-ABBOTT-10P-163-0682544-00

PATIENT
  Sex: Female
  Weight: 77.18 kg

DRUGS (2)
  1. MERIDIA [Suspect]
     Indication: OBESITY
     Dates: start: 20091001, end: 20101001
  2. ACTOS [Concomitant]
     Indication: DIABETES MELLITUS

REACTIONS (1)
  - HEART SOUNDS ABNORMAL [None]
